FAERS Safety Report 6271100-9 (Version None)
Quarter: 2009Q3

REPORT INFORMATION
  Report Type: 
  Country: None (occurrence: None)
  Receive Date: 20090716
  Receipt Date: 20090708
  Transmission Date: 20100115
  Serious: Yes (Hospitalization, Disabling)
  Sender: FDA-Public Use
  Company Number: US-MERCK-0905USA00172

PATIENT
  Age: 65 Year
  Sex: Female

DRUGS (6)
  1. FOSAMAX [Suspect]
     Indication: OSTEOPENIA
     Route: 048
     Dates: start: 19961101
  2. FOSAMAX [Suspect]
     Indication: OSTEOPOROSIS
     Route: 048
     Dates: start: 19961101
  3. HORMONES (UNSPECIFIED) [Concomitant]
     Route: 065
     Dates: start: 19800101
  4. ALBUTEROL [Concomitant]
     Indication: ASTHMA
     Route: 065
     Dates: start: 19900101
  5. DOXEPIN HYDROCHLORIDE [Concomitant]
     Indication: DEPRESSION
     Route: 065
     Dates: start: 19900101, end: 20080101
  6. DOXEPIN HYDROCHLORIDE [Concomitant]
     Route: 065
     Dates: start: 19900101

REACTIONS (11)
  - ABSCESS [None]
  - ARTHROPATHY [None]
  - BACK PAIN [None]
  - GASTROOESOPHAGEAL REFLUX DISEASE [None]
  - HYPERTENSION [None]
  - MUSCLE SPASMS [None]
  - NECK PAIN [None]
  - OEDEMA MOUTH [None]
  - ORAL PAIN [None]
  - ORAL TORUS [None]
  - OSTEONECROSIS [None]
